FAERS Safety Report 17380389 (Version 1)
Quarter: 2020Q1

REPORT INFORMATION
  Report Type: Spontaneous
  Country: US (occurrence: US)
  Receive Date: 20200206
  Receipt Date: 20200206
  Transmission Date: 20200409
  Serious: No
  Sender: FDA-Public Use
  Company Number: US-ABBVIE-19K-163-2739731-00

PATIENT
  Age: 68 Year
  Sex: Male
  Weight: 74.91 kg

DRUGS (2)
  1. HUMIRA [Suspect]
     Active Substance: ADALIMUMAB
     Indication: PSORIASIS
     Route: 058
     Dates: start: 201902, end: 201903
  2. SYNTHROID [Concomitant]
     Active Substance: LEVOTHYROXINE SODIUM
     Indication: HYPOTHYROIDISM

REACTIONS (6)
  - Aphonia [Recovering/Resolving]
  - Nasopharyngitis [Recovering/Resolving]
  - Tonsillitis [Recovering/Resolving]
  - Laryngitis [Recovering/Resolving]
  - Wrong technique in product usage process [Unknown]
  - Epiglottitis [Recovering/Resolving]

NARRATIVE: CASE EVENT DATE: 2019
